FAERS Safety Report 4846085-X (Version None)
Quarter: 2005Q4

REPORT INFORMATION
  Report Type: 
  Country: None (occurrence: None)
  Receive Date: 20051130
  Receipt Date: 20051114
  Transmission Date: 20060501
  Serious: Yes (Death)
  Sender: FDA-Public Use
  Company Number: DSA_27451_2005

PATIENT
  Age: 65 Year
  Sex: Male

DRUGS (1)
  1. DILTIAZEM HCL [Suspect]
     Dosage: 2160 MG ONCE PO
     Route: 048

REACTIONS (1)
  - ACCIDENTAL OVERDOSE [None]
